FAERS Safety Report 9240474 (Version 1)
Quarter: 2013Q2

REPORT INFORMATION
  Report Type: Spontaneous
  Country: US (occurrence: None)
  Receive Date: 20130417
  Receipt Date: 20130417
  Transmission Date: 20140414
  Serious: Yes (Hospitalization)
  Sender: FDA-Public Use
  Company Number: 2013-0529

PATIENT
  Age: 84 Year
  Sex: Male

DRUGS (7)
  1. KYPROLIS (CARFILZOMIB) (INJECTION FOR INFUSION) (CARFILZOMIB) [Suspect]
     Indication: PLASMA CELL MYELOMA
     Route: 042
     Dates: start: 20130311
  2. DONEPEZIL (DONEPEZIL) (DONEPEZIL) [Concomitant]
  3. BABY ASPIRIN (ACETYLSALICYLIC ACID) (TABLET) (ACETYLSALICYLIC ACID) [Concomitant]
  4. ATORVASTATIN (ATORVASTATIN) (ATORVASTATIN) [Concomitant]
  5. VITAMIN B12 (CYANOCOBALAMIN) (CYANOCOBALAMIN) [Concomitant]
  6. VITAMIN B6 (PYRIDOXINE HYDROCHLORIDE) (TABLET) (PYRIDOXINE HYDROCHLORIDE) [Concomitant]
  7. KLOR-CON (POTASSIUM CHLORIDE) (POTASSIUM CHLORIDE) [Concomitant]

REACTIONS (5)
  - Haemoglobin decreased [None]
  - Blood urine present [None]
  - Asthenia [None]
  - Urinary tract infection [None]
  - Kidney infection [None]
